FAERS Safety Report 4342420-X (Version None)
Quarter: 2004Q2

REPORT INFORMATION
  Report Type: 
  Country: None (occurrence: None)
  Receive Date: 20040416
  Receipt Date: 20040405
  Transmission Date: 20050107
  Serious: Yes (Other)
  Sender: FDA-Public Use
  Company Number: 2004010839

PATIENT
  Age: 33 Year
  Sex: Male

DRUGS (2)
  1. PHENYTOIN [Suspect]
     Indication: CONVULSION
     Dosage: 500 (BID), ORAL
     Route: 048
     Dates: start: 19880403, end: 20040101
  2. DILANTIN [Suspect]
     Indication: CONVULSION
     Dosage: 500 (BID), ORAL
     Route: 048

REACTIONS (2)
  - CONVULSION [None]
  - DRUG LEVEL DECREASED [None]
